FAERS Safety Report 4899685-5 (Version None)
Quarter: 2006Q1

REPORT INFORMATION
  Report Type: 
  Country: None (occurrence: None)
  Receive Date: 20060131
  Receipt Date: 20060119
  Transmission Date: 20060701
  Serious: Yes (Hospitalization)
  Sender: FDA-Public Use
  Company Number: MC200600090

PATIENT
  Age: 84 Year
  Sex: Male
  Weight: 70.3 kg

DRUGS (11)
  1. ANGIOMAX [Suspect]
     Indication: CORONARY ARTERIAL STENT INSERTION
     Dosage: 0.75 MG/KG, BOLUS, IV BOLUS; 1.75 MG/KG/HR; INTRAVENOUS
     Route: 040
     Dates: start: 20060117, end: 20060117
  2. ANGIOMAX [Suspect]
     Indication: CORONARY ARTERIAL STENT INSERTION
     Dosage: 0.75 MG/KG, BOLUS, IV BOLUS; 1.75 MG/KG/HR; INTRAVENOUS
     Route: 040
     Dates: start: 20060117
  3. ASPIRIN [Concomitant]
  4. PLAVIX [Concomitant]
  5. TENORMIN [Concomitant]
  6. LASIX [Concomitant]
  7. LIPITOR [Concomitant]
  8. FENTANYL [Concomitant]
  9. VERSED [Concomitant]
  10. NITROGLYCERIN ^A.L.^ (GLYCERYL TRINITRATE) [Concomitant]
  11. LIDOCAINE [Concomitant]

REACTIONS (5)
  - ACTIVATED PARTIAL THROMBOPLASTIN TIME PROLONGED [None]
  - CARDIAC ARREST [None]
  - HYPOTENSION [None]
  - REPERFUSION INJURY [None]
  - THROMBOSIS [None]
